FAERS Safety Report 13739543 (Version 1)
Quarter: 2017Q3

REPORT INFORMATION
  Report Type: Other
  Country: TW (occurrence: TW)
  Receive Date: 20170711
  Receipt Date: 20170711
  Transmission Date: 20171127
  Serious: Yes (Other)
  Sender: FDA-Public Use
  Company Number: TW-ORCHID HEALTHCARE-2023196

PATIENT
  Age: 57 Year
  Sex: Female

DRUGS (1)
  1. RIVASTIGMINE TARTRATE. [Suspect]
     Active Substance: RIVASTIGMINE TARTRATE
     Indication: DEMENTIA
     Route: 065

REACTIONS (1)
  - Pleurothotonus [Recovered/Resolved]
